FAERS Safety Report 14785507 (Version 4)
Quarter: 2020Q4

REPORT INFORMATION
  Report Type: Report from Study
  Country: US (occurrence: US)
  Receive Date: 20180420
  Receipt Date: 20201102
  Transmission Date: 20210113
  Serious: Yes (Hospitalization, Other)
  Sender: FDA-Public Use
  Company Number: US-TAKEDA-2017MPI010611

PATIENT
  Age: 48 Year
  Sex: Male

DRUGS (6)
  1. IXAZOMIB [Suspect]
     Active Substance: IXAZOMIB
     Dosage: 4 MILLIGRAM
     Route: 048
     Dates: start: 201701, end: 20181220
  2. VELCADE [Suspect]
     Active Substance: BORTEZOMIB
     Indication: PLASMA CELL MYELOMA
     Dosage: UNK
     Route: 065
  3. DEXAMETHASONE. [Suspect]
     Active Substance: DEXAMETHASONE
     Indication: PLASMA CELL MYELOMA
     Dosage: UNK
     Route: 065
     Dates: start: 2015, end: 20181220
  4. IXAZOMIB [Suspect]
     Active Substance: IXAZOMIB
     Indication: PLASMA CELL MYELOMA
     Dosage: UNK
     Route: 065
     Dates: start: 20151001
  5. TRINTELLIX [Suspect]
     Active Substance: VORTIOXETINE HYDROBROMIDE
     Indication: DEPRESSION
     Dosage: UNK, QD
     Route: 065
  6. REVLIMID [Suspect]
     Active Substance: LENALIDOMIDE
     Indication: PLASMA CELL MYELOMA
     Dosage: UNK
     Route: 065

REACTIONS (19)
  - Back pain [Unknown]
  - Plasma cell myeloma [Unknown]
  - Pneumonia [Unknown]
  - Dyspnoea [Unknown]
  - Infection [Unknown]
  - Neuropathy peripheral [Unknown]
  - Cough [Unknown]
  - Red blood cell count decreased [Unknown]
  - Amyloidosis [Unknown]
  - White blood cell count decreased [Unknown]
  - Protein total increased [Unknown]
  - Parkinson^s disease [Unknown]
  - Osteochondrosis [Unknown]
  - Oropharyngeal pain [Unknown]
  - Illness [Unknown]
  - Blood immunoglobulin G decreased [Unknown]
  - Blood calcium increased [Unknown]
  - Sleep apnoea syndrome [Unknown]
  - Haemoglobin decreased [Unknown]

NARRATIVE: CASE EVENT DATE: 20180130
